FAERS Safety Report 6762419-3 (Version None)
Quarter: 2010Q2

REPORT INFORMATION
  Report Type: 
  Country: None (occurrence: None)
  Receive Date: 20100609
  Receipt Date: 20100528
  Transmission Date: 20101027
  Serious: Yes (Other)
  Sender: FDA-Public Use
  Company Number: NL-GENZYME-CLOF-1000992

PATIENT
  Sex: Male
  Weight: 74 kg

DRUGS (3)
  1. EVOLTRA [Suspect]
     Indication: DRUG USE FOR UNKNOWN INDICATION
     Dosage: 10 MG/M2, UNK
     Route: 042
     Dates: start: 20100519, end: 20100523
  2. AMSACRINE [Suspect]
     Indication: DRUG USE FOR UNKNOWN INDICATION
     Dosage: 120 MG/M2, UNK
     Route: 042
     Dates: start: 20100522, end: 20100524
  3. CYTARABINE [Suspect]
     Indication: DRUG USE FOR UNKNOWN INDICATION
     Dosage: 1000 MG/M2, UNK
     Route: 042
     Dates: start: 20100519, end: 20100524

REACTIONS (1)
  - DERMATITIS EXFOLIATIVE [None]
